FAERS Safety Report 10183429 (Version 1)
Quarter: 2014Q2

REPORT INFORMATION
  Report Type: Spontaneous
  Country: FR (occurrence: FR)
  Receive Date: 20140520
  Receipt Date: 20140520
  Transmission Date: 20141212
  Serious: Yes (Other)
  Sender: FDA-Public Use
  Company Number: FR-GALDERMA-FR14001776

PATIENT
  Age: 29 Year
  Sex: Female

DRUGS (1)
  1. CUTACNYL [Suspect]
     Indication: ACNE
     Dosage: 10%
     Route: 061
     Dates: start: 20140326, end: 20140327

REACTIONS (1)
  - Urticaria [Recovered/Resolved]
